FAERS Safety Report 11067469 (Version 1)
Quarter: 2015Q2

REPORT INFORMATION
  Report Type: Spontaneous
  Country: IR (occurrence: IR)
  Receive Date: 20150427
  Receipt Date: 20150427
  Transmission Date: 20150821
  Serious: Yes (Other)
  Sender: FDA-Public Use
  Company Number: PHHY2015IR048682

PATIENT
  Age: 22 Year
  Sex: Female

DRUGS (2)
  1. PREDNISOLONE. [Suspect]
     Active Substance: PREDNISOLONE
     Indication: ALOPECIA UNIVERSALIS
     Dosage: 25 MG, QD
     Route: 048
  2. METHOTREXATE [Suspect]
     Active Substance: METHOTREXATE
     Indication: ALOPECIA UNIVERSALIS
     Dosage: 10 MG/WEEK
     Route: 048

REACTIONS (3)
  - Acne [Unknown]
  - Off label use [Unknown]
  - Therapeutic response unexpected [Unknown]
